FAERS Safety Report 11813302 (Version 1)
Quarter: 2015Q4

REPORT INFORMATION
  Report Type: Spontaneous
  Country: US (occurrence: None)
  Receive Date: 20151208
  Receipt Date: 20151208
  Transmission Date: 20160305
  Serious: Yes (Hospitalization)
  Sender: FDA-Public Use
  Company Number: None

PATIENT
  Age: 71 Year
  Sex: Male
  Weight: 88.3 kg

DRUGS (14)
  1. PRILOSEC [Concomitant]
     Active Substance: OMEPRAZOLE MAGNESIUM
  2. ASA [Suspect]
     Active Substance: ASPIRIN
     Route: 048
  3. LASIX [Concomitant]
     Active Substance: FUROSEMIDE
  4. ZESTRIL [Concomitant]
     Active Substance: LISINOPRIL
  5. COUMADIN [Suspect]
     Active Substance: WARFARIN SODIUM
     Indication: CORONARY ARTERY DISEASE
     Dosage: CHRONIC
     Route: 048
  6. TRAXNENE [Concomitant]
  7. FLOMAX [Concomitant]
     Active Substance: TAMSULOSIN HYDROCHLORIDE
  8. LANTUS [Concomitant]
     Active Substance: INSULIN GLARGINE
  9. TOPROL XL [Concomitant]
     Active Substance: METOPROLOL SUCCINATE
  10. COUMADIN [Suspect]
     Active Substance: WARFARIN SODIUM
     Indication: ATRIAL FIBRILLATION
     Dosage: CHRONIC
     Route: 048
  11. ZOCOR [Concomitant]
     Active Substance: SIMVASTATIN
  12. EFFIENT [Suspect]
     Active Substance: PRASUGREL HYDROCHLORIDE
     Indication: CORONARY ARTERY DISEASE
     Dosage: CHRONIC
     Route: 048
  13. NOVOLOG [Concomitant]
     Active Substance: INSULIN ASPART
  14. CARAFATE [Concomitant]
     Active Substance: SUCRALFATE

REACTIONS (4)
  - Dyspnoea exertional [None]
  - Haemorrhagic anaemia [None]
  - Gastric ulcer [None]
  - Gastric polyps [None]

NARRATIVE: CASE EVENT DATE: 20150327
